FAERS Safety Report 4512088-8 (Version None)
Quarter: 2004Q4

REPORT INFORMATION
  Report Type: 
  Country: None (occurrence: None)
  Receive Date: 20041123
  Receipt Date: 20041110
  Transmission Date: 20050328
  Serious: No
  Sender: FDA-Public Use
  Company Number: A01200404832

PATIENT
  Age: 69 Year
  Sex: Male

DRUGS (3)
  1. XATRAL                  (ALFUZOSIN) [Suspect]
     Indication: BENIGN PROSTATIC HYPERPLASIA
     Dosage: 10 MG  OD/10 MG OD
     Route: 048
     Dates: start: 20040630, end: 20040714
  2. XATRAL                  (ALFUZOSIN) [Suspect]
     Indication: BENIGN PROSTATIC HYPERPLASIA
     Dosage: 10 MG  OD/10 MG OD
     Route: 048
     Dates: start: 20040730, end: 20040828
  3. DUTASTERIDE [Suspect]
     Indication: BENIGN PROSTATIC HYPERPLASIA
     Dosage: 0.5 MG
     Route: 048
     Dates: start: 20040630

REACTIONS (3)
  - RASH MACULAR [None]
  - RASH PRURITIC [None]
  - URTICARIA GENERALISED [None]
